FAERS Safety Report 9965608 (Version 1)
Quarter: 2014Q1

REPORT INFORMATION
  Report Type: Report from Study
  Country: US (occurrence: US)
  Receive Date: 20140305
  Receipt Date: 20140305
  Transmission Date: 20141002
  Serious: No
  Sender: FDA-Public Use
  Company Number: US-ABBVIE-13P-163-1125511-00

PATIENT
  Age: 37 Year
  Sex: Male

DRUGS (5)
  1. HUMIRA [Suspect]
     Indication: COLITIS ULCERATIVE
     Dates: start: 20130621
  2. ASACOL HD [Concomitant]
     Indication: PRODUCT USED FOR UNKNOWN INDICATION
     Dosage: 800MG (2)
  3. CELEXA [Concomitant]
     Indication: ANXIETY
     Dosage: 20MG DAILY
  4. CELEXA [Concomitant]
     Indication: DEPRESSION
  5. HYDROCODONE [Concomitant]
     Indication: PAIN
     Dosage: 5/325MG 1 OR 2 TABS AT BEDTIME

REACTIONS (1)
  - Injection site pain [Recovered/Resolved]
